FAERS Safety Report 13144274 (Version 1)
Quarter: 2017Q1

REPORT INFORMATION
  Report Type: Spontaneous
  Country: US (occurrence: US)
  Receive Date: 20170124
  Receipt Date: 20170124
  Transmission Date: 20170428
  Serious: No
  Sender: FDA-Public Use
  Company Number: US-EMD SERONO-8137309

PATIENT
  Age: 46 Year
  Sex: Male

DRUGS (1)
  1. REBIF [Suspect]
     Active Substance: INTERFERON BETA-1A
     Indication: MULTIPLE SCLEROSIS
     Route: 058

REACTIONS (6)
  - Fatigue [Unknown]
  - Hypoaesthesia [Unknown]
  - Drug dose omission [Recovered/Resolved]
  - Dizziness [Unknown]
  - Injection site erythema [Recovering/Resolving]
  - Tremor [Unknown]
